FAERS Safety Report 6304578-2 (Version None)
Quarter: 2009Q3

REPORT INFORMATION
  Report Type: 
  Country: None (occurrence: None)
  Receive Date: 20090811
  Receipt Date: 20090731
  Transmission Date: 20100115
  Serious: Yes (Hospitalization)
  Sender: FDA-Public Use
  Company Number: JP-JNJFOC-20090800798

PATIENT
  Age: 8 Decade
  Sex: Female
  Weight: 50 kg

DRUGS (5)
  1. REMICADE [Suspect]
     Route: 042
  2. REMICADE [Suspect]
     Indication: RHEUMATOID ARTHRITIS
     Route: 042
  3. ANTIHISTAMINE [Concomitant]
     Indication: PREMEDICATION
  4. ANTIPYRETIC ANALGESICS [Concomitant]
     Indication: PREMEDICATION
  5. H2 RECEPTOR ANTAGONIST [Concomitant]
     Indication: PREMEDICATION

REACTIONS (3)
  - INFUSION RELATED REACTION [None]
  - PYREXIA [None]
  - TREMOR [None]
